FAERS Safety Report 13858654 (Version 3)
Quarter: 2017Q3

REPORT INFORMATION
  Report Type: Report from Study
  Country: None (occurrence: US)
  Receive Date: 20170811
  Receipt Date: 20170823
  Transmission Date: 20171127
  Serious: Yes (Hospitalization, Other)
  Sender: FDA-Public Use
  Company Number: US-ABBVIE-17K-163-2066990-00

PATIENT
  Sex: Female
  Weight: 90.8 kg

DRUGS (6)
  1. PENTASA [Suspect]
     Active Substance: MESALAMINE
     Indication: CROHN^S DISEASE
     Route: 065
  2. CLONAZEPAM. [Concomitant]
     Active Substance: CLONAZEPAM
     Indication: PRODUCT USED FOR UNKNOWN INDICATION
  3. HUMIRA [Suspect]
     Active Substance: ADALIMUMAB
     Indication: CROHN^S DISEASE
     Route: 058
     Dates: start: 20140103, end: 201508
  4. HUMIRA [Suspect]
     Active Substance: ADALIMUMAB
     Indication: PSORIASIS
     Route: 058
     Dates: start: 201601
  5. XARELTO [Suspect]
     Active Substance: RIVAROXABAN
     Indication: ANTICOAGULANT THERAPY
     Route: 065
  6. KEPPRA [Suspect]
     Active Substance: LEVETIRACETAM
     Indication: SEIZURE
     Route: 065

REACTIONS (7)
  - Urine output decreased [Recovered/Resolved]
  - Large intestinal obstruction [Recovered/Resolved]
  - Motor dysfunction [Recovered/Resolved]
  - Renal failure [Recovered/Resolved]
  - Vomiting [Recovered/Resolved]
  - Seizure [Recovering/Resolving]
  - Asthenia [Recovered/Resolved]

NARRATIVE: CASE EVENT DATE: 2015
